FAERS Safety Report 10072165 (Version 2)
Quarter: 2014Q2

REPORT INFORMATION
  Report Type: Report from Study
  Country: FR (occurrence: FR)
  Receive Date: 20140411
  Receipt Date: 20140411
  Transmission Date: 20141212
  Serious: Yes (Other)
  Sender: FDA-Public Use
  Company Number: FR-ACCORD-022963

PATIENT
  Sex: Male

DRUGS (3)
  1. MYCOPHENOLIC ACID [Suspect]
     Indication: TRANSPLANT
  2. TACROLIMUS [Suspect]
     Indication: TRANSPLANT
     Dosage: 0.1 MG/KG/D FROM DAY 2 TO OBTAIN BLOOD LEVELS BETWEEN 10 AND 15 NG/ML
  3. PREDNISOLONE [Suspect]
     Indication: TRANSPLANT

REACTIONS (2)
  - Off label use [Unknown]
  - Osteopenia [Unknown]
